FAERS Safety Report 23956630 (Version 1)
Quarter: 2024Q2

REPORT INFORMATION
  Report Type: Spontaneous
  Country: JP (occurrence: JP)
  Receive Date: 20240610
  Receipt Date: 20240610
  Transmission Date: 20240715
  Serious: Yes (Hospitalization)
  Sender: FDA-Public Use
  Company Number: JP-ANIPHARMA-2024-JP-000131

PATIENT
  Age: 74 Year
  Sex: Female

DRUGS (7)
  1. LANSOPRAZOLE [Suspect]
     Active Substance: LANSOPRAZOLE
     Indication: Gastrooesophageal reflux disease
     Dosage: UNKNOWN
  2. CARVEDILOL [Concomitant]
     Active Substance: CARVEDILOL
  3. NIFEDIPINE [Concomitant]
     Active Substance: NIFEDIPINE
  4. VALSARTAN [Concomitant]
     Active Substance: VALSARTAN
  5. PRAVASTATIN [Concomitant]
     Active Substance: PRAVASTATIN
  6. DOXAZOSIN [Concomitant]
     Active Substance: DOXAZOSIN MESYLATE
  7. lactobacillus-bifidus [Concomitant]

REACTIONS (1)
  - Colitis microscopic [Recovering/Resolving]
